FAERS Safety Report 4850853-8 (Version None)
Quarter: 2005Q4

REPORT INFORMATION
  Report Type: 
  Country: None (occurrence: None)
  Receive Date: 20051208
  Receipt Date: 20051128
  Transmission Date: 20060501
  Serious: Yes (Disabling, Other)
  Sender: FDA-Public Use
  Company Number: 2005159183

PATIENT
  Age: 77 Year
  Sex: Male
  Weight: 80 kg

DRUGS (2)
  1. DETRUSITOL SR (TOLTERODINE) [Suspect]
     Indication: ILL-DEFINED DISORDER
     Dosage: 4 MG (4 MG, DAILY, INTERVAL: EVERY DAY), ORAL
     Route: 048
     Dates: start: 20050903, end: 20050911
  2. LANTUS [Concomitant]

REACTIONS (3)
  - BLADDER DISORDER [None]
  - URINARY RETENTION [None]
  - URINE FLOW DECREASED [None]
